FAERS Safety Report 23614708 (Version 1)
Quarter: 2024Q1

REPORT INFORMATION
  Report Type: Spontaneous
  Country: DE (occurrence: DE)
  Receive Date: 20240311
  Receipt Date: 20240311
  Transmission Date: 20240409
  Serious: Yes (Hospitalization, Other)
  Sender: FDA-Public Use
  Company Number: DE-NOVOPROD-1183723

PATIENT
  Age: 41 Year
  Sex: Male
  Weight: 151 kg

DRUGS (3)
  1. WEGOVY [Suspect]
     Active Substance: SEMAGLUTIDE
     Indication: Obesity
     Dosage: 0.25 MG, QW
     Dates: start: 20240125, end: 20240220
  2. WEGOVY [Suspect]
     Active Substance: SEMAGLUTIDE
     Indication: Metabolic syndrome
  3. ALLOPURINOL [Concomitant]
     Active Substance: ALLOPURINOL
     Indication: Product used for unknown indication
     Dosage: 300 MG, QD
     Route: 048
     Dates: start: 2010

REACTIONS (5)
  - Ureterolithiasis [Not Recovered/Not Resolved]
  - Nephrectasia [Not Recovered/Not Resolved]
  - Kidney congestion [Not Recovered/Not Resolved]
  - Weight decreased [Unknown]
  - Inappropriate schedule of product administration [Unknown]

NARRATIVE: CASE EVENT DATE: 20240125
